FAERS Safety Report 12283524 (Version 3)
Quarter: 2019Q1

REPORT INFORMATION
  Report Type: Spontaneous
  Country: CN (occurrence: CN)
  Receive Date: 20160419
  Receipt Date: 20190216
  Transmission Date: 20190417
  Serious: Yes (Hospitalization)
  Sender: FDA-Public Use
  Company Number: CN-JNJFOC-20160404760

PATIENT
  Age: 23 Year
  Sex: Female

DRUGS (4)
  1. CLINDAMYCIN PALMITATE HYDROCHLORIDE. [Suspect]
     Active Substance: CLINDAMYCIN PALMITATE HYDROCHLORIDE
     Indication: OROPHARYNGEAL PAIN
     Route: 048
     Dates: start: 20150924, end: 20150925
  2. TYLENOL [Suspect]
     Active Substance: ACETAMINOPHEN
     Indication: PYREXIA
     Route: 048
     Dates: start: 20150926, end: 20150926
  3. CODEINE W/IBUPROFEN [Suspect]
     Active Substance: CODEINE\IBUPROFEN
     Indication: HEADACHE
     Route: 048
     Dates: start: 20150924, end: 20150925
  4. TYLENOL [Suspect]
     Active Substance: ACETAMINOPHEN
     Route: 048

REACTIONS (3)
  - Pruritus [Recovering/Resolving]
  - Rash erythematous [Recovering/Resolving]
  - Pyrexia [Recovering/Resolving]

NARRATIVE: CASE EVENT DATE: 20150925
